FAERS Safety Report 10053143 (Version 1)
Quarter: 2014Q2

REPORT INFORMATION
  Report Type: Spontaneous
  Country: JP (occurrence: JP)
  Receive Date: 20140402
  Receipt Date: 20140402
  Transmission Date: 20141212
  Serious: Yes (Hospitalization, Other)
  Sender: FDA-Public Use
  Company Number: PHHY2014JP038141

PATIENT
  Age: 30 Year
  Sex: Male

DRUGS (6)
  1. NEORAL [Suspect]
     Indication: DERMATITIS ATOPIC
     Dosage: UNK
     Route: 048
  2. NEORAL [Suspect]
     Dosage: UNK
     Route: 048
  3. NEORAL [Suspect]
     Dosage: UNK
     Route: 048
     Dates: end: 201402
  4. POLARAMINE [Concomitant]
     Indication: DERMATITIS ATOPIC
     Dosage: UNK
  5. ADRENAL CORTEX PREPARATIONS [Concomitant]
     Indication: DERMATITIS ATOPIC
     Dosage: UNK UKN, UNK
  6. CORTICOSTEROIDS [Concomitant]
     Indication: DERMATITIS ATOPIC
     Dosage: UNK UKN, UNK

REACTIONS (7)
  - Dermatitis atopic [Unknown]
  - Purulence [Unknown]
  - Large intestine polyp [Recovered/Resolved]
  - Lymphoma [Not Recovered/Not Resolved]
  - Lymphadenopathy [Unknown]
  - Dyspnoea [Unknown]
  - Metastases to spine [Unknown]
